FAERS Safety Report 5224688-0 (Version None)
Quarter: 2007Q1

REPORT INFORMATION
  Report Type: 
  Country: None (occurrence: None)
  Receive Date: 20070129
  Receipt Date: 20070129
  Transmission Date: 20070707
  Serious: Yes (Life-Threatening, Hospitalization)
  Sender: FDA-Public Use
  Company Number: None

PATIENT
  Age: 18 Year
  Sex: Male
  Weight: 77.1115 kg

DRUGS (5)
  1. EPZICOM [Suspect]
     Indication: HIV INFECTION
     Dosage: 900 MG QD PO
     Route: 048
     Dates: start: 20061214, end: 20061228
  2. TRUVADA [Suspect]
     Indication: HIV INFECTION
     Dosage: 500 MG QD PO
     Route: 048
     Dates: start: 20061214, end: 20061228
  3. PLACEBO [Suspect]
     Indication: HIV INFECTION
     Dosage: 900 MG QD PO
     Route: 048
     Dates: start: 20061214, end: 20061228
  4. PLACEBO [Suspect]
     Indication: HIV INFECTION
     Dosage: 500 MG QD PO
     Route: 048
     Dates: start: 20061214, end: 20061228
  5. EFAVIRENZ [Suspect]
     Indication: HIV INFECTION
     Dosage: 600 MG QD PO
     Route: 048
     Dates: start: 20061214, end: 20061223

REACTIONS (16)
  - FATIGUE [None]
  - HEADACHE [None]
  - HEART RATE INCREASED [None]
  - HYPERGLYCAEMIA [None]
  - HYPERSENSITIVITY [None]
  - HYPOAESTHESIA [None]
  - HYPOKALAEMIA [None]
  - HYPONATRAEMIA [None]
  - HYPOTENSION [None]
  - PARAESTHESIA [None]
  - RENAL FAILURE ACUTE [None]
  - SCLERAL DISCOLOURATION [None]
  - SEPSIS [None]
  - SKIN EXFOLIATION [None]
  - TOXIC SHOCK SYNDROME [None]
  - TREATMENT NONCOMPLIANCE [None]
